FAERS Safety Report 7523054-2 (Version None)
Quarter: 2011Q2

REPORT INFORMATION
  Report Type: 
  Country: None (occurrence: None)
  Receive Date: 20110601
  Receipt Date: 20110601
  Transmission Date: 20111010
  Serious: No
  Sender: FDA-Public Use
  Company Number: None

PATIENT
  Age: 61 Year
  Sex: Male
  Weight: 131.4 kg

DRUGS (2)
  1. DRONEDARONE HCL [Suspect]
     Indication: ATRIAL FIBRILLATION
     Dosage: 400 MG BID PO
     Route: 048
     Dates: start: 20100107, end: 20100601
  2. DRONEDARONE HCL [Suspect]
     Indication: MITRAL VALVE INCOMPETENCE
     Dosage: 400 MG BID PO
     Route: 048
     Dates: start: 20100107, end: 20100601

REACTIONS (2)
  - MYALGIA [None]
  - DYSPEPSIA [None]
